FAERS Safety Report 9741181 (Version 1)
Quarter: 2013Q4

REPORT INFORMATION
  Report Type: Spontaneous
  Country: DK (occurrence: DK)
  Receive Date: 20131209
  Receipt Date: 20131209
  Transmission Date: 20140711
  Serious: Yes (Other)
  Sender: FDA-Public Use
  Company Number: DK-WATSON-2013-22457

PATIENT
  Sex: Male
  Weight: 89 kg

DRUGS (3)
  1. SIMVASTATIN ACTAVIS [Suspect]
     Indication: BLOOD CHOLESTEROL INCREASED
     Dosage: 40 MG, DAILY; (DOSE: 1 X DAILY, STRENGTH: 40 MG) DOSIS: 1 X DAGLIGT, STYRKE: 40 MG
     Route: 065
     Dates: start: 20050310, end: 201306
  2. HJERTEMAGNYL                       /00228701/ [Concomitant]
     Indication: ANTICOAGULANT THERAPY
     Dosage: 75 MG, UNKNOWN; STRENGHT (STYRKE): 75 MG
     Route: 065
     Dates: start: 20050310
  3. PERSANTIN RETARD [Concomitant]
     Indication: ANTICOAGULANT THERAPY
     Dosage: 200 MG, BID; DOSE: 2 X DAILY. STRENGTH: 200 MG (DOSIS: 2 X DAGLIGT. STYRKE: 200 MG)
     Route: 065
     Dates: start: 20050310

REACTIONS (2)
  - Amnesia [Recovering/Resolving]
  - Muscle spasms [Recovering/Resolving]
